FAERS Safety Report 23241069 (Version 1)
Quarter: 2023Q4

REPORT INFORMATION
  Report Type: Spontaneous
  Country: BE (occurrence: BE)
  Receive Date: 20231129
  Receipt Date: 20231129
  Transmission Date: 20240109
  Serious: Yes (Hospitalization)
  Sender: FDA-Public Use
  Company Number: BE-MYLANLABS-2023M1125355

PATIENT
  Age: 40 Year
  Sex: Male

DRUGS (8)
  1. TEMOZOLOMIDE [Suspect]
     Active Substance: TEMOZOLOMIDE
     Indication: Blood corticotrophin increased
     Dosage: UNK UNK, CYCLE (9 CYCLES)
     Route: 065
  2. TEMOZOLOMIDE [Suspect]
     Active Substance: TEMOZOLOMIDE
     Indication: Pituitary tumour
  3. KETOCONAZOLE [Suspect]
     Active Substance: KETOCONAZOLE
     Indication: Blood corticotrophin increased
     Dosage: UNK
     Route: 065
  4. KETOCONAZOLE [Suspect]
     Active Substance: KETOCONAZOLE
     Indication: Pituitary tumour
  5. PASIREOTIDE [Suspect]
     Active Substance: PASIREOTIDE
     Indication: Blood corticotrophin increased
     Dosage: UNK
     Route: 065
  6. PASIREOTIDE [Suspect]
     Active Substance: PASIREOTIDE
     Indication: Pituitary tumour
  7. CABERGOLINE [Suspect]
     Active Substance: CABERGOLINE
     Indication: Blood corticotrophin increased
     Dosage: UNK
     Route: 065
  8. CABERGOLINE [Suspect]
     Active Substance: CABERGOLINE
     Indication: Pituitary tumour

REACTIONS (2)
  - Disease progression [Unknown]
  - Drug ineffective [Unknown]
